FAERS Safety Report 8617366 (Version 5)
Quarter: 2013Q2

REPORT INFORMATION
  Report Type: Spontaneous
  Country: US (occurrence: US)
  Receive Date: 20120615
  Receipt Date: 20130415
  Transmission Date: 20140414
  Serious: Yes (Other)
  Sender: FDA-Public Use
  Company Number: US-PFIZER INC-2012142822

PATIENT
  Age: 62 Year
  Sex: Female
  Weight: 68 kg

DRUGS (8)
  1. PROTONIX [Suspect]
     Indication: GASTROOESOPHAGEAL REFLUX DISEASE
     Dosage: 40 MG, 1X/DAY
     Route: 048
     Dates: start: 2009, end: 201205
  2. PROTONIX [Suspect]
     Indication: DYSPEPSIA
  3. EXFORGE [Concomitant]
     Indication: HYPERTENSION
     Dosage: UNK
  4. METFORMIN [Concomitant]
     Indication: DIABETES MELLITUS
     Dosage: UNK
  5. LYRICA [Concomitant]
     Indication: DIABETES MELLITUS
     Dosage: UNK
  6. AMARYL [Concomitant]
     Indication: DIABETES MELLITUS
     Dosage: UNK
  7. MELOXICAM [Concomitant]
     Dosage: UNK
  8. CITALOPRAM [Concomitant]
     Indication: DEPRESSION
     Dosage: UNK

REACTIONS (5)
  - Diabetes mellitus [Unknown]
  - Coma [Recovered/Resolved]
  - Malaise [Unknown]
  - Dyspepsia [Unknown]
  - Blood potassium decreased [Unknown]
